FAERS Safety Report 20438935 (Version 1)
Quarter: 2022Q1

REPORT INFORMATION
  Report Type: Spontaneous
  Country: US (occurrence: None)
  Receive Date: 20220204
  Receipt Date: 20220204
  Transmission Date: 20220423
  Serious: Yes (Death)
  Sender: FDA-Public Use
  Company Number: None

PATIENT
  Age: 92 Year
  Sex: Female
  Weight: 47.17 kg

DRUGS (1)
  1. SOTROVIMAB [Suspect]
     Active Substance: SOTROVIMAB
     Indication: COVID-19
     Dosage: OTHER FREQUENCY : 500MG/8ML ;?
     Route: 042
     Dates: start: 20220126, end: 20220126

REACTIONS (3)
  - Livedo reticularis [None]
  - Unresponsive to stimuli [None]
  - Death [None]

NARRATIVE: CASE EVENT DATE: 20220129
